FAERS Safety Report 5143499-8 (Version None)
Quarter: 2006Q4

REPORT INFORMATION
  Report Type: 
  Country: None (occurrence: None)
  Receive Date: 20061103
  Receipt Date: 20061025
  Transmission Date: 20070319
  Serious: Yes (Hospitalization)
  Sender: FDA-Public Use
  Company Number: FR-GLAXOSMITHKLINE-B0444427A

PATIENT
  Age: 58 Year
  Sex: Female
  Weight: 61 kg

DRUGS (4)
  1. ZOVIRAX [Suspect]
     Indication: MENINGITIS
     Route: 042
     Dates: start: 20060107, end: 20060112
  2. CLAMOXYL [Concomitant]
     Indication: TOOTH ABSCESS
     Dosage: 3G FOUR TIMES PER DAY
     Route: 065
     Dates: start: 20060104
  3. GENTAMICIN [Concomitant]
     Dosage: 600MG THREE TIMES PER DAY
     Route: 042
     Dates: start: 20060107, end: 20060108
  4. AUGMENTIN '125' [Concomitant]
     Route: 065
     Dates: start: 20060104

REACTIONS (3)
  - OLIGURIA [None]
  - OVERDOSE [None]
  - RENAL FAILURE ACUTE [None]
